FAERS Safety Report 8501345-6 (Version None)
Quarter: 2012Q3

REPORT INFORMATION
  Report Type: 
  Country: None (occurrence: None)
  Receive Date: 20120702
  Receipt Date: 20120619
  Transmission Date: 20120928
  Serious: Yes (Other)
  Sender: FDA-Public Use
  Company Number: DKLU1082472

PATIENT

DRUGS (5)
  1. ELSPAR [Suspect]
     Indication: T-CELL LYMPHOMA STAGE IV
  2. DEXAMETHASONE [Suspect]
     Indication: T-CELL LYMPHOMA STAGE IV
  3. METHOTREXATE SODIUM [Suspect]
     Indication: T-CELL LYMPHOMA STAGE IV
  4. IFOSFAMIDE [Suspect]
     Indication: T-CELL LYMPHOMA STAGE IV
  5. ETOPOSIDE [Suspect]
     Indication: T-CELL LYMPHOMA STAGE IV

REACTIONS (1)
  - NEUTROPENIA [None]
